APPROVED DRUG PRODUCT: RAPAMUNE
Active Ingredient: SIROLIMUS
Strength: 5MG **Federal Register determination that product was not discontinued or withdrawn for safety or effectiveness reasons**
Dosage Form/Route: TABLET;ORAL
Application: N021110 | Product #003
Applicant: PF PRISM CV
Approved: Feb 23, 2004 | RLD: Yes | RS: No | Type: DISCN